FAERS Safety Report 9934469 (Version 1)
Quarter: 2014Q1

REPORT INFORMATION
  Report Type: Spontaneous
  Country: TR (occurrence: None)
  Receive Date: 20140226
  Receipt Date: 20140226
  Transmission Date: 20141002
  Serious: Yes (Other)
  Sender: FDA-Public Use
  Company Number: IPC201402-000088

PATIENT
  Age: 63 Year
  Sex: Female

DRUGS (2)
  1. WARFARIN (WARFARIN) (WARFARIN) [Suspect]
     Indication: PULMONARY EMBOLISM
     Dosage: 5MG PER DAY
  2. HERBAL MEDICATION [Suspect]
     Indication: ARTHRALGIA

REACTIONS (5)
  - Haematuria [None]
  - Rash [None]
  - Drug interaction [None]
  - International normalised ratio increased [None]
  - Toxicity to various agents [None]
